FAERS Safety Report 10141669 (Version 1)
Quarter: 2014Q2

REPORT INFORMATION
  Report Type: Spontaneous
  Country: TR (occurrence: TR)
  Receive Date: 20140429
  Receipt Date: 20140429
  Transmission Date: 20141212
  Serious: Yes (Other)
  Sender: FDA-Public Use
  Company Number: TR-ACTAVIS-2014-08372

PATIENT
  Age: 20 Year
  Sex: Male

DRUGS (3)
  1. ETOPOSIDE (UNKNOWN) [Suspect]
     Indication: TESTICULAR EMBRYONAL CARCINOMA
     Dosage: UNK
     Route: 042
  2. BLEOMYCIN [Concomitant]
     Indication: TESTICULAR EMBRYONAL CARCINOMA
     Dosage: UNK
     Route: 042
  3. CISPLATIN [Concomitant]
     Indication: TESTICULAR EMBRYONAL CARCINOMA
     Dosage: UNK
     Route: 065

REACTIONS (7)
  - Drug hypersensitivity [Recovered/Resolved]
  - Dyspnoea [Recovered/Resolved]
  - Pruritus [Recovered/Resolved]
  - Hyperhidrosis [Recovered/Resolved]
  - Rash [Recovered/Resolved]
  - Hypotension [Recovered/Resolved]
  - Tachycardia [Recovered/Resolved]
